FAERS Safety Report 8765642 (Version 2)
Quarter: 2013Q3

REPORT INFORMATION
  Report Type: Report from Study
  Country: MX (occurrence: MX)
  Receive Date: 20120903
  Receipt Date: 20130701
  Transmission Date: 20140515
  Serious: Yes (Other)
  Sender: FDA-Public Use
  Company Number: PHHY2012MX075440

PATIENT
  Age: 70 Year
  Sex: Male

DRUGS (3)
  1. CO-DIOVAN [Suspect]
     Indication: HYPERTENSION
     Dosage: 1 DF (160 MG VALS AND 12.5 MG HCTZ), DAILY
     Dates: start: 201207, end: 201208
  2. CO-DIOVAN [Suspect]
     Dosage: 1 DF (320 MG VALS AND 12.5 MG HCTZ), DAILY
     Dates: start: 201208, end: 201305
  3. CARBAMAZEPIN [Concomitant]
     Indication: BLOOD CHOLESTEROL
     Dosage: 2 DF, DAILY
     Dates: start: 201106

REACTIONS (3)
  - Embolism [Unknown]
  - Blood cholesterol increased [Unknown]
  - Hypertension [Recovered/Resolved]
